FAERS Safety Report 12341675 (Version 2)
Quarter: 2017Q4

REPORT INFORMATION
  Report Type: Report from Study
  Country: US (occurrence: US)
  Receive Date: 20160506
  Receipt Date: 20171004
  Transmission Date: 20180320
  Serious: Yes (Death, Other)
  Sender: FDA-Public Use
  Company Number: US-AMGEN-USASP2016053282

PATIENT
  Age: 78 Year
  Sex: Female

DRUGS (1)
  1. REPATHA [Suspect]
     Active Substance: EVOLOCUMAB
     Indication: TYPE IIA HYPERLIPIDAEMIA
     Dosage: 140 MG, Q2WK
     Route: 065
     Dates: start: 201604

REACTIONS (11)
  - Asthenia [Recovering/Resolving]
  - Ill-defined disorder [Unknown]
  - Coordination abnormal [Recovering/Resolving]
  - Respiratory tract congestion [Recovering/Resolving]
  - Death [Fatal]
  - Influenza like illness [Unknown]
  - Pain [Recovering/Resolving]
  - Sputum discoloured [Recovering/Resolving]
  - Nausea [Recovering/Resolving]
  - Mobility decreased [Recovering/Resolving]
  - Fatigue [Recovering/Resolving]

NARRATIVE: CASE EVENT DATE: 20160423
